FAERS Safety Report 9547795 (Version 3)
Quarter: 2014Q2

REPORT INFORMATION
  Report Type: Spontaneous
  Country: JP (occurrence: None)
  Receive Date: 20130920
  Receipt Date: 20140421
  Transmission Date: 20141212
  Serious: Yes (Other)
  Sender: FDA-Public Use
  Company Number: ADR-2013-01652

PATIENT
  Age: 42 Year
  Sex: Male

DRUGS (1)
  1. GABALON [Suspect]
     Indication: CEREBRAL PALSY

REACTIONS (6)
  - Implant site infection [None]
  - Decubitus ulcer [None]
  - Wrong technique in drug usage process [None]
  - Drug resistance [None]
  - Foreign body reaction [None]
  - Immune system disorder [None]
